FAERS Safety Report 10950087 (Version 2)
Quarter: 2015Q2

REPORT INFORMATION
  Report Type: Report from Study
  Country: US (occurrence: US)
  Receive Date: 20150324
  Receipt Date: 20150625
  Transmission Date: 20150821
  Serious: Yes (Hospitalization, Other)
  Sender: FDA-Public Use
  Company Number: US-EXELIXIS-CABO-14004688

PATIENT
  Sex: Male

DRUGS (5)
  1. CABOZANTINIB [Suspect]
     Active Substance: CABOZANTINIB
     Dosage: 100 MG, QD
     Route: 048
     Dates: start: 20140913
  2. CABOZANTINIB [Suspect]
     Active Substance: CABOZANTINIB
     Dosage: 80 MG, QD
     Route: 048
     Dates: end: 20150127
  3. CABOZANTINIB [Suspect]
     Active Substance: CABOZANTINIB
     Dosage: 80 MG, QD
     Route: 048
     Dates: start: 20141031, end: 20141213
  4. CABOZANTINIB [Suspect]
     Active Substance: CABOZANTINIB
     Indication: THYROID CANCER
     Dosage: 140 MG, QD
     Route: 048
     Dates: start: 20140826, end: 2014
  5. ZOLOFT [Concomitant]
     Active Substance: SERTRALINE HYDROCHLORIDE

REACTIONS (19)
  - Dysphagia [Not Recovered/Not Resolved]
  - Rash [Unknown]
  - Decreased appetite [Unknown]
  - Dry mouth [Unknown]
  - Diarrhoea [Recovered/Resolved]
  - Chapped lips [Unknown]
  - Hair colour changes [Unknown]
  - Haemoptysis [Unknown]
  - Lung infection [Unknown]
  - Aphagia [Not Recovered/Not Resolved]
  - Hypersensitivity [Unknown]
  - Painful respiration [Unknown]
  - Oedema [Recovered/Resolved]
  - Fatigue [Not Recovered/Not Resolved]
  - Dry throat [Unknown]
  - Chest pain [Not Recovered/Not Resolved]
  - Pain [Recovered/Resolved]
  - Dry skin [Unknown]
  - Genital rash [Not Recovered/Not Resolved]

NARRATIVE: CASE EVENT DATE: 2014
